FAERS Safety Report 23072321 (Version 5)
Quarter: 2024Q1

REPORT INFORMATION
  Report Type: Spontaneous
  Country: AT (occurrence: AT)
  Receive Date: 20231017
  Receipt Date: 20240115
  Transmission Date: 20240410
  Serious: Yes (Other)
  Sender: FDA-Public Use
  Company Number: AT-ABBVIE-5433456

PATIENT
  Age: 36 Year
  Sex: Male

DRUGS (6)
  1. TREMFYA [Suspect]
     Active Substance: GUSELKUMAB
     Indication: Product used for unknown indication
     Route: 065
     Dates: start: 201906, end: 202303
  2. REMICADE [Suspect]
     Active Substance: INFLIXIMAB
     Indication: Product used for unknown indication
     Route: 042
     Dates: start: 2014, end: 2015
  3. RINVOQ [Suspect]
     Active Substance: UPADACITINIB
     Indication: Crohn^s disease
     Route: 048
     Dates: start: 202306
  4. RINVOQ [Suspect]
     Active Substance: UPADACITINIB
     Route: 048
  5. HUMIRA [Suspect]
     Active Substance: ADALIMUMAB
     Indication: Crohn^s disease
     Route: 058
     Dates: start: 2008, end: 2013
  6. VEDOLIZUMAB [Concomitant]
     Active Substance: VEDOLIZUMAB
     Indication: Product used for unknown indication
     Route: 065
     Dates: start: 201801, end: 2019

REACTIONS (22)
  - Pulmonary embolism [Unknown]
  - Parenteral nutrition [Unknown]
  - Thrombosis [Unknown]
  - Panniculitis [Unknown]
  - Terminal ileitis [Unknown]
  - Abscess intestinal [Unknown]
  - Intestinal fistula [Unknown]
  - Wolff-Parkinson-White syndrome [Unknown]
  - C-reactive protein increased [Unknown]
  - Acne [Unknown]
  - Therapeutic product effect decreased [Unknown]
  - Erythema nodosum [Recovered/Resolved]
  - Liver disorder [Recovered/Resolved]
  - Acne [Unknown]
  - Gastrointestinal wall thickening [Unknown]
  - Infusion related reaction [Unknown]
  - Faecal calprotectin increased [Unknown]
  - Small intestinal anastomosis [Unknown]
  - Therapeutic product effect decreased [Unknown]
  - Erythema nodosum [Recovered/Resolved]
  - Erythema nodosum [Recovered/Resolved]
  - Scar [Unknown]

NARRATIVE: CASE EVENT DATE: 20090101
